FAERS Safety Report 5576508-2 (Version None)
Quarter: 2007Q4

REPORT INFORMATION
  Report Type: 
  Country: None (occurrence: None)
  Receive Date: 20071228
  Receipt Date: 20071219
  Transmission Date: 20080405
  Serious: Yes (Hospitalization)
  Sender: FDA-Public Use
  Company Number: B0290335A

PATIENT
  Age: 39 Year
  Sex: Female

DRUGS (2)
  1. AUGMENTIN '250' [Suspect]
     Indication: TRACHEITIS
     Dosage: 2G PER DAY
     Route: 048
     Dates: start: 20030107, end: 20030113
  2. FLUNISOLIDE [Concomitant]
     Indication: TRACHEITIS
     Route: 055
     Dates: start: 20030107, end: 20030110

REACTIONS (7)
  - ACUTE GENERALISED EXANTHEMATOUS PUSTULOSIS [None]
  - ADVERSE DRUG REACTION [None]
  - LEUKOCYTOSIS [None]
  - RASH [None]
  - RASH PUSTULAR [None]
  - RASH VESICULAR [None]
  - SKIN EXFOLIATION [None]
